FAERS Safety Report 12995730 (Version 1)
Quarter: 2016Q4

REPORT INFORMATION
  Report Type: Report from Study
  Country: None (occurrence: CO)
  Receive Date: 20161202
  Receipt Date: 20161202
  Transmission Date: 20170207
  Serious: Yes (Death)
  Sender: FDA-Public Use
  Company Number: CO-ABBVIE-16P-036-1797048-00

PATIENT
  Age: 31 Year
  Sex: Female
  Weight: 55 kg

DRUGS (1)
  1. ZEMPLAR [Suspect]
     Active Substance: PARICALCITOL
     Indication: HYPERPARATHYROIDISM SECONDARY
     Route: 048
     Dates: start: 20140626, end: 20160919

REACTIONS (4)
  - Hip fracture [Fatal]
  - Cardiac arrest [Fatal]
  - Osteosynthesis [Fatal]
  - Fall [Fatal]

NARRATIVE: CASE EVENT DATE: 20161104
